FAERS Safety Report 17242275 (Version 1)
Quarter: 2020Q1

REPORT INFORMATION
  Report Type: Spontaneous
  Country: US (occurrence: US)
  Receive Date: 20200106
  Receipt Date: 20200106
  Transmission Date: 20200409
  Serious: Yes (Hospitalization)
  Sender: FDA-Public Use
  Company Number: None

PATIENT
  Age: 58 Year
  Sex: Female

DRUGS (1)
  1. TALZENNA [Suspect]
     Active Substance: TALAZOPARIB TOSYLATE
     Indication: BREAST CANCER
     Route: 048
     Dates: start: 20190702

REACTIONS (5)
  - Nausea [None]
  - Anaemia [None]
  - Diabetes mellitus [None]
  - Neuropathy peripheral [None]
  - Dizziness [None]
